FAERS Safety Report 9345314 (Version 1)
Quarter: 2013Q2

REPORT INFORMATION
  Report Type: Report from Study
  Country: AR (occurrence: AR)
  Receive Date: 20130613
  Receipt Date: 20130613
  Transmission Date: 20140414
  Serious: Yes (Hospitalization)
  Sender: FDA-Public Use
  Company Number: AR-ROCHE-1236025

PATIENT
  Age: 69 Year
  Sex: Female

DRUGS (2)
  1. RANIBIZUMAB [Suspect]
     Indication: EYE DISORDER
     Route: 050
     Dates: start: 2012
  2. RANIBIZUMAB [Suspect]
     Route: 050
     Dates: start: 201211, end: 201211

REACTIONS (3)
  - Pneumonia [Recovering/Resolving]
  - Stress [Recovering/Resolving]
  - Abdominal pain upper [Not Recovered/Not Resolved]
